FAERS Safety Report 9978218 (Version 1)
Quarter: 2014Q1

REPORT INFORMATION
  Report Type: Spontaneous
  Country: US (occurrence: US)
  Receive Date: 20140306
  Receipt Date: 20140306
  Transmission Date: 20141002
  Serious: Yes (Hospitalization)
  Sender: FDA-Public Use
  Company Number: US-ELI_LILLY_AND_COMPANY-US201402008506

PATIENT
  Sex: Female

DRUGS (10)
  1. HUMALOG LISPRO [Suspect]
     Indication: TYPE 2 DIABETES MELLITUS
     Dosage: 12 U, EACH MORNING
     Route: 065
     Dates: start: 2012
  2. HUMALOG LISPRO [Suspect]
     Dosage: 20 U, EACH EVENING
     Route: 065
     Dates: start: 2012
  3. LANTUS [Concomitant]
  4. LISINOPRIL [Concomitant]
  5. METFORMIN [Concomitant]
  6. WELLBUTRIN [Concomitant]
  7. LEXAPRO [Concomitant]
  8. DICLOFENAC [Concomitant]
  9. DEPAKOTE [Concomitant]
  10. MELATONIN [Concomitant]

REACTIONS (1)
  - Cholelithiasis [Unknown]
